FAERS Safety Report 6926730-5 (Version None)
Quarter: 2010Q3

REPORT INFORMATION
  Report Type: 
  Country: None (occurrence: None)
  Receive Date: 20100816
  Receipt Date: 20100621
  Transmission Date: 20110219
  Serious: No
  Sender: FDA-Public Use
  Company Number: US-ABBOTT-10P-163-0652558-00

PATIENT
  Sex: Male
  Weight: 74.91 kg

DRUGS (5)
  1. SIMCOR [Suspect]
     Indication: LOW DENSITY LIPOPROTEIN INCREASED
     Dosage: 500/20MG AT SUPPER TIME
     Dates: start: 20100604
  2. SIMCOR [Suspect]
     Indication: HIGH DENSITY LIPOPROTEIN DECREASED
  3. BENICAR [Concomitant]
     Indication: PRODUCT USED FOR UNKNOWN INDICATION
  4. ULORIC [Concomitant]
     Indication: PRODUCT USED FOR UNKNOWN INDICATION
  5. BISIORIKIK/HCTZ [Concomitant]
     Indication: PRODUCT USED FOR UNKNOWN INDICATION
     Dosage: 2.5/6.5MG

REACTIONS (2)
  - FATIGUE [None]
  - LETHARGY [None]
